FAERS Safety Report 9093010 (Version 1)
Quarter: 2013Q1

REPORT INFORMATION
  Report Type: Report from Study
  Country: US (occurrence: US)
  Receive Date: 20130131
  Receipt Date: 20130131
  Transmission Date: 20140127
  Serious: No
  Sender: FDA-Public Use
  Company Number: US-ABBOTT-12P-163-1004246-00

PATIENT
  Sex: Female
  Weight: 86.26 kg

DRUGS (5)
  1. HUMIRA [Suspect]
     Indication: RHEUMATOID ARTHRITIS
     Route: 058
     Dates: start: 2011
  2. VICODIN [Concomitant]
     Indication: PAIN
  3. METHOTREXATE [Concomitant]
     Indication: PRODUCT USED FOR UNKNOWN INDICATION
     Dosage: 12.5MG WEEKLY
     Route: 048
     Dates: start: 201209
  4. PREDNISONE [Concomitant]
     Indication: ARTHRITIS
     Dosage: TAPERING DOWN TO 5 MG TWICE DAILY
     Route: 048
     Dates: start: 201209, end: 201209
  5. PREDNISONE [Concomitant]
     Dosage: TAPERED DOWN FROM 25MG PER DAY

REACTIONS (5)
  - Joint swelling [Recovering/Resolving]
  - Drug ineffective [Not Recovered/Not Resolved]
  - Arthritis [Recovering/Resolving]
  - Arthralgia [Recovering/Resolving]
  - Joint swelling [Recovering/Resolving]
